FAERS Safety Report 4526494-9 (Version None)
Quarter: 2004Q4

REPORT INFORMATION
  Report Type: 
  Country: None (occurrence: None)
  Receive Date: 20041214
  Receipt Date: 20041209
  Transmission Date: 20050328
  Serious: Yes (Hospitalization, Disabling)
  Sender: FDA-Public Use
  Company Number: SE-MERCK-0412SWE00013

PATIENT
  Age: 56 Year
  Sex: Male

DRUGS (2)
  1. VIOXX [Suspect]
     Indication: OSTEOARTHRITIS
     Route: 048
     Dates: start: 20030307, end: 20041006
  2. NITROGLYCERIN [Concomitant]
     Route: 065

REACTIONS (2)
  - ANGINA PECTORIS [None]
  - STRESS SYMPTOMS [None]
